FAERS Safety Report 16619637 (Version 1)
Quarter: 2019Q3

REPORT INFORMATION
  Report Type: Spontaneous
  Country: US (occurrence: US)
  Receive Date: 20190723
  Receipt Date: 20190723
  Transmission Date: 20191004
  Serious: Yes (Death, Hospitalization, Other)
  Sender: FDA-Public Use
  Company Number: US-ASTRAZENECA-2019SF02560

PATIENT
  Age: 18987 Day
  Sex: Female

DRUGS (2)
  1. PRILOSEC [Suspect]
     Active Substance: OMEPRAZOLE MAGNESIUM
     Route: 048
  2. NEXIUM [Suspect]
     Active Substance: ESOMEPRAZOLE MAGNESIUM
     Route: 048

REACTIONS (11)
  - Sepsis [Unknown]
  - Hepatic cirrhosis [Unknown]
  - Anaemia [Unknown]
  - Renal disorder [Unknown]
  - Acute kidney injury [Unknown]
  - Shock [Unknown]
  - Jaundice [Unknown]
  - Peritonitis bacterial [Unknown]
  - Death [Fatal]
  - Pyrexia [Unknown]
  - Atypical haemolytic uraemic syndrome [Unknown]

NARRATIVE: CASE EVENT DATE: 20180121
